FAERS Safety Report 10183090 (Version 2)
Quarter: 2014Q2

REPORT INFORMATION
  Report Type: Spontaneous
  Country: US (occurrence: US)
  Receive Date: 20140520
  Receipt Date: 20140527
  Transmission Date: 20141212
  Serious: No
  Sender: FDA-Public Use
  Company Number: US-BAYER-2014-073572

PATIENT
  Age: 69 Year
  Sex: Female
  Weight: 88.44 kg

DRUGS (2)
  1. ALEVE CAPLET [Suspect]
     Dosage: UNK UNK, PRN
     Route: 048
     Dates: start: 20140515
  2. BAYER ADVANCED ASPIRIN EXTRA STRENGTH [Concomitant]
     Indication: ISCHAEMIC HEART DISEASE PROPHYLAXIS
     Dosage: 1 DF, QD
     Route: 048

REACTIONS (4)
  - Abdominal pain upper [Recovered/Resolved]
  - Gastrointestinal sounds abnormal [Recovered/Resolved]
  - Diarrhoea [Recovered/Resolved]
  - Intentional product misuse [None]
